FAERS Safety Report 5668965-8 (Version None)
Quarter: 2008Q1

REPORT INFORMATION
  Report Type: 
  Country: None (occurrence: None)
  Receive Date: 20080317
  Receipt Date: 20080306
  Transmission Date: 20080703
  Serious: Yes (Other)
  Sender: FDA-Public Use
  Company Number: US-ROCHE-551723

PATIENT
  Sex: Female

DRUGS (1)
  1. TAMIFLU [Suspect]
     Dosage: PATIENT TOOK 2 DOSES ON 12 FEBRUARY 2008.
     Route: 065
     Dates: start: 20080212, end: 20080212

REACTIONS (1)
  - DELUSION [None]
